FAERS Safety Report 11898135 (Version 3)
Quarter: 2016Q2

REPORT INFORMATION
  Report Type: Report from Study
  Country: KR (occurrence: KR)
  Receive Date: 20160108
  Receipt Date: 20160408
  Transmission Date: 20160815
  Serious: Yes (Hospitalization)
  Sender: FDA-Public Use
  Company Number: KR-ASTRAZENECA-2015SF31543

PATIENT
  Age: 29257 Day
  Sex: Male
  Weight: 64.4 kg

DRUGS (1)
  1. TICAGRELOR [Suspect]
     Active Substance: TICAGRELOR
     Indication: PERIPHERAL ARTERIAL OCCLUSIVE DISEASE
     Route: 048
     Dates: start: 20130716, end: 20150730

REACTIONS (1)
  - Gliomatosis cerebri [Recovered/Resolved with Sequelae]

NARRATIVE: CASE EVENT DATE: 20150722
